FAERS Safety Report 8951107 (Version 1)
Quarter: 2012Q4

REPORT INFORMATION
  Report Type: 
  Country: IT (occurrence: IT)
  Receive Date: 20121207
  Receipt Date: 20121207
  Transmission Date: 20130627
  Serious: Yes (Hospitalization)
  Sender: FDA-Public Use
  Company Number: IT-WATSON-2012-21214

PATIENT
  Age: 23 Year
  Sex: Female

DRUGS (2)
  1. ALPRAZOLAM (UNKNOWN) [Suspect]
     Indication: PRODUCT USED FOR UNKNOWN INDICATION
     Dosage: overdose with 10 mg total
     Route: 048
     Dates: start: 20121105, end: 20121105
  2. PAROXETINE HYDROCHLORIDE [Suspect]
     Indication: PRODUCT USED FOR UNKNOWN INDICATION
     Dosage: overdose with 300 mg total
     Route: 048
     Dates: start: 20121105, end: 20121105

REACTIONS (4)
  - Substance abuse [Recovered/Resolved with Sequelae]
  - Intentional drug misuse [Recovered/Resolved with Sequelae]
  - Depression [Recovered/Resolved with Sequelae]
  - Overdose [Unknown]
